FAERS Safety Report 23903833 (Version 1)
Quarter: 2024Q2

REPORT INFORMATION
  Report Type: Spontaneous
  Country: US (occurrence: US)
  Receive Date: 20240527
  Receipt Date: 20240527
  Transmission Date: 20240716
  Serious: No
  Sender: FDA-Public Use
  Company Number: US-BIOVITRUM-2024-US-007598

PATIENT
  Age: 63 Year
  Sex: Female

DRUGS (1)
  1. VONJO [Suspect]
     Active Substance: PACRITINIB
     Indication: Myelofibrosis
     Dosage: (VONJO 100MG CAPS) 200 MGTWICE A DAY
     Route: 048
     Dates: start: 20231113

REACTIONS (2)
  - Weight decreased [Unknown]
  - Abdominal discomfort [Unknown]
